FAERS Safety Report 6239164-6 (Version None)
Quarter: 2009Q2

REPORT INFORMATION
  Report Type: 
  Country: None (occurrence: None)
  Receive Date: 20090618
  Receipt Date: 20090618
  Transmission Date: 20091009
  Serious: Yes (Disabling)
  Sender: FDA-Public Use
  Company Number: None

PATIENT
  Sex: Female
  Weight: 61.2356 kg

DRUGS (1)
  1. ZICAM [Suspect]
     Indication: SINUS DISORDER
     Dosage: SPRAY 1 OR 2 X DAY NOSE VERY SHORT PERIOD IT BURNED FAMILIAR
     Route: 045

REACTIONS (3)
  - LACRIMATION INCREASED [None]
  - NASAL DISCOMFORT [None]
  - RHINALGIA [None]
